FAERS Safety Report 10647690 (Version 3)
Quarter: 2015Q1

REPORT INFORMATION
  Report Type: Spontaneous
  Country: DE (occurrence: DE)
  Receive Date: 20141212
  Receipt Date: 20150205
  Transmission Date: 20150720
  Serious: Yes (Hospitalization, Other)
  Sender: FDA-Public Use
  Company Number: DE-AMGEN-DEUSP2014095783

PATIENT
  Age: 51 Year
  Sex: Female
  Weight: 74 kg

DRUGS (3)
  1. PACLITAX NAB [Concomitant]
     Active Substance: PACLITAXEL
     Dosage: 220 MG, WEEKLY
     Route: 042
     Dates: start: 20140502, end: 20140508
  2. PACLITAX NAB [Concomitant]
     Active Substance: PACLITAXEL
     Dosage: UNK
     Dates: start: 20140528
  3. NEULASTA [Suspect]
     Active Substance: PEGFILGRASTIM
     Indication: PROPHYLAXIS
     Dosage: 6 MG, AFTER CHEMO
     Route: 042
     Dates: start: 20140503, end: 20140503

REACTIONS (7)
  - Biopsy lymph gland [Unknown]
  - C-reactive protein increased [Unknown]
  - Body temperature increased [Unknown]
  - Headache [Recovered/Resolved]
  - Leukocytosis [Unknown]
  - Breast operation [Unknown]
  - Erythema [Unknown]

NARRATIVE: CASE EVENT DATE: 201405
